FAERS Safety Report 9049592 (Version 1)
Quarter: 2013Q1

REPORT INFORMATION
  Report Type: Spontaneous
  Country: US (occurrence: US)
  Receive Date: 20130205
  Receipt Date: 20130205
  Transmission Date: 20140127
  Serious: Yes (Other)
  Sender: FDA-Public Use
  Company Number: US-ROCHE-1173464

PATIENT
  Sex: Female
  Weight: 87.17 kg

DRUGS (5)
  1. HERCEPTIN [Suspect]
     Indication: BREAST CANCER
     Route: 042
     Dates: start: 20110707, end: 20120731
  2. HERCEPTIN [Suspect]
     Route: 042
     Dates: start: 20111222
  3. TAXOTERE [Concomitant]
     Indication: BREAST CANCER
     Route: 042
     Dates: start: 20110707, end: 20111108
  4. CARBOPLATIN [Concomitant]
     Indication: BREAST CANCER
     Route: 042
     Dates: start: 20110707, end: 20111108
  5. PERTUZUMAB [Concomitant]
     Route: 065
     Dates: start: 20111222

REACTIONS (4)
  - Treatment failure [Unknown]
  - Erysipeloid [Recovering/Resolving]
  - Metastases to skin [Recovering/Resolving]
  - Disease progression [Unknown]
